FAERS Safety Report 6637246-8 (Version None)
Quarter: 2010Q1

REPORT INFORMATION
  Report Type: 
  Country: None (occurrence: None)
  Receive Date: 20100316
  Receipt Date: 20100222
  Transmission Date: 20100710
  Serious: No
  Sender: FDA-Public Use
  Company Number: US-ABBOTT-10P-163-0628594-00

PATIENT
  Sex: Female
  Weight: 95.34 kg

DRUGS (6)
  1. TRILIPIX [Suspect]
     Indication: BLOOD TRIGLYCERIDES INCREASED
     Dosage: AT 1ST TAKING MED DAILY, BUT AFTER 2 OR 3 DAYS DID EVERY OTHER DAY
     Route: 048
     Dates: start: 20100101, end: 20100201
  2. TRILIPIX [Suspect]
     Dosage: LOT NUMBER NOT AVAILABLE.
     Route: 048
     Dates: start: 20091101, end: 20091223
  3. FENOFIBRATE [Concomitant]
     Indication: BLOOD TRIGLYCERIDES INCREASED
     Dosage: UNKNOWN DOSE
     Route: 048
     Dates: start: 20091223, end: 20100101
  4. FENOFIBRATE [Concomitant]
     Dosage: UNKNOWN DOSE
     Route: 048
  5. LOVAZA [Concomitant]
     Indication: DRUG USE FOR UNKNOWN INDICATION
  6. MULTI-VITAMIN [Concomitant]
     Indication: DRUG USE FOR UNKNOWN INDICATION

REACTIONS (5)
  - GAIT DISTURBANCE [None]
  - MIDDLE INSOMNIA [None]
  - MUSCLE SPASMS [None]
  - PAIN [None]
  - TENDERNESS [None]
